FAERS Safety Report 7488163-5 (Version None)
Quarter: 2011Q2

REPORT INFORMATION
  Report Type: 
  Country: None (occurrence: None)
  Receive Date: 20110518
  Receipt Date: 20110510
  Transmission Date: 20111010
  Serious: Yes (Hospitalization)
  Sender: FDA-Public Use
  Company Number: NL-ROCHE-777114

PATIENT
  Sex: Male
  Weight: 71 kg

DRUGS (6)
  1. PANZYTRAT [Concomitant]
     Route: 048
     Dates: start: 20110301, end: 20110501
  2. LISINOPRIL [Suspect]
     Indication: HYPERTENSION
     Route: 048
     Dates: start: 20000101, end: 20110501
  3. AFINITOR [Suspect]
     Indication: PROPHYLACTIC CHEMOTHERAPY
     Route: 048
     Dates: start: 20110301, end: 20110501
  4. XELODA [Suspect]
     Indication: PROPHYLACTIC CHEMOTHERAPY
     Route: 048
     Dates: start: 20110307, end: 20110501
  5. METFORMIN HCL [Concomitant]
     Route: 048
     Dates: start: 20000101, end: 20110501
  6. METOCLOPRAMIDE [Concomitant]
     Route: 048
     Dates: start: 20110301, end: 20110501

REACTIONS (2)
  - ACQUIRED PHIMOSIS [None]
  - ANGIOEDEMA [None]
